FAERS Safety Report 10339319 (Version 1)
Quarter: 2014Q3

REPORT INFORMATION
  Report Type: Spontaneous
  Country: US (occurrence: None)
  Receive Date: 20140723
  Receipt Date: 20140723
  Transmission Date: 20150326
  Serious: Yes (Hospitalization)
  Sender: FDA-Public Use
  Company Number: None

PATIENT
  Age: 51 Year
  Sex: Male
  Weight: 92.5 kg

DRUGS (1)
  1. EFAVIRENZ [Suspect]
     Active Substance: EFAVIRENZ
     Indication: HEPATITIS ACUTE
     Route: 048
     Dates: start: 19991202, end: 20140613

REACTIONS (3)
  - Cholestatic liver injury [None]
  - Drug-induced liver injury [None]
  - Hepatocellular injury [None]

NARRATIVE: CASE EVENT DATE: 20140324
